FAERS Safety Report 8757476 (Version 1)
Quarter: 2012Q4

REPORT INFORMATION
  Report Type: 
  Country: US (occurrence: US)
  Receive Date: 20120828
  Receipt Date: 20120828
  Transmission Date: 20130627
  Serious: Yes (Hospitalization)
  Sender: FDA-Public Use
  Company Number: US-BAYER-2012-087422

PATIENT
  Age: 20 Year
  Sex: Female
  Weight: 60.32 kg

DRUGS (27)
  1. YAZ [Suspect]
     Indication: CONTRACEPTION
  2. GIANVI [Suspect]
  3. ALLEGRA [Concomitant]
     Indication: MULTIPLE ALLERGIES
     Route: 048
  4. SUDAFED [Concomitant]
     Indication: RHINITIS ALLERGIC
     Dosage: as needed
     Route: 048
  5. AVELOX [Concomitant]
     Indication: SINUSITIS
     Dosage: 400 mg, UNK
     Route: 048
  6. FIORICET [Concomitant]
     Indication: HEADACHE
     Dosage: as needed
     Route: 048
  7. IBUPROFEN [Concomitant]
     Indication: HEADACHE
     Dosage: 800 mg, every 4 hours
     Route: 048
  8. ZOFRAN [Concomitant]
     Dosage: Every 8 hours as needed
     Route: 048
  9. GARDASIL [Concomitant]
     Dosage: UNK
     Dates: start: 20120106
  10. AMOXICILLIN [Concomitant]
  11. CLAVULANATE POTASSIUM [Concomitant]
  12. PREDNISONE [Concomitant]
  13. TORADOL [Concomitant]
  14. OXYCONTIN [Concomitant]
     Indication: PAIN
  15. DILAUDID [Concomitant]
     Indication: PAIN
  16. NEURONTIN [Concomitant]
  17. SCOPOLAMIN [Concomitant]
  18. FERROUS SULFATE [Concomitant]
  19. HYDROMORPHONE [Concomitant]
  20. PHENERGAN [PROMETHAZINE] [Concomitant]
  21. SENOKOT-S [DOCUSATE SODIUM,SENNA ALEXANDRINA] [Concomitant]
  22. DURAGESIC [Concomitant]
  23. FLONASE [Concomitant]
  24. VICODIN [Concomitant]
  25. FENTANYL [Concomitant]
  26. NORCO [Concomitant]
  27. LEXAPRO [Concomitant]
     Dosage: 10 mg, UNK

REACTIONS (1)
  - Intracranial venous sinus thrombosis [None]
